FAERS Safety Report 24386089 (Version 1)
Quarter: 2024Q4

REPORT INFORMATION
  Report Type: Spontaneous
  Country: US (occurrence: None)
  Receive Date: 20241001
  Receipt Date: 20241001
  Transmission Date: 20250114
  Serious: Yes (Other)
  Sender: Public
  Company Number: None

PATIENT
  Age: 68 Year
  Sex: Female

DRUGS (1)
  1. HUMIRA [Suspect]
     Active Substance: ADALIMUMAB
     Indication: Rheumatoid arthritis
     Dosage: FREQUENCY : EVERY OTHER WEEK;?
     Route: 058

REACTIONS (9)
  - Glucose tolerance impaired [None]
  - Hypertension [None]
  - Blood cholesterol abnormal [None]
  - Thyroid disorder [None]
  - Peripheral swelling [None]
  - Pain [None]
  - Oedema peripheral [None]
  - Fluid retention [None]
  - Therapy interrupted [None]

NARRATIVE: CASE EVENT DATE: 20241001
